FAERS Safety Report 9755912 (Version 1)
Quarter: 2013Q4

REPORT INFORMATION
  Report Type: Other
  Country: TR (occurrence: TR)
  Receive Date: 20131213
  Receipt Date: 20131213
  Transmission Date: 20140711
  Serious: Yes (Other)
  Sender: FDA-Public Use
  Company Number: TR-BRISTOL-MYERS SQUIBB COMPANY-19910389

PATIENT
  Age: 62 Year
  Sex: Female

DRUGS (2)
  1. MITOMYCIN-C [Suspect]
     Indication: BREAST CANCER METASTATIC
  2. NAVELBINE [Concomitant]

REACTIONS (1)
  - Dermatitis psoriasiform [Recovered/Resolved]
